FAERS Safety Report 16063296 (Version 1)
Quarter: 2019Q1

REPORT INFORMATION
  Report Type: Spontaneous
  Country: FR (occurrence: FR)
  Receive Date: 20190312
  Receipt Date: 20190312
  Transmission Date: 20190418
  Serious: Yes (Other)
  Sender: FDA-Public Use
  Company Number: FR-MYLANLABS-2019M1021808

PATIENT
  Age: 14 Year
  Sex: Female
  Weight: 50 kg

DRUGS (1)
  1. TRAMADOL MYLAN GENERIQUES LP 150 MG, COMPRIM? ? LIB?RATION PROLONG?E [Suspect]
     Active Substance: TRAMADOL
     Indication: ABDOMINAL PAIN
     Dosage: 100 MILLIGRAM, 3 PRN.
     Route: 048
     Dates: start: 20180812

REACTIONS (4)
  - Somnolence [Recovered/Resolved]
  - Medication error [Recovered/Resolved]
  - Wrong schedule [Recovered/Resolved]
  - Miosis [Recovered/Resolved]

NARRATIVE: CASE EVENT DATE: 20180812
